FAERS Safety Report 9017594 (Version 1)
Quarter: 2013Q1

REPORT INFORMATION
  Report Type: Spontaneous
  Country: US (occurrence: US)
  Receive Date: 20130117
  Receipt Date: 20130117
  Transmission Date: 20140127
  Serious: Yes (Hospitalization)
  Sender: FDA-Public Use
  Company Number: US-BAYER-2013-005007

PATIENT
  Age: 62 Year
  Sex: Female

DRUGS (5)
  1. ACETYLSALICYLIC ACID({=100 MG) [Suspect]
     Dosage: 81 MG DAILY
  2. CLOPIDOGREL [Suspect]
     Dosage: 75 MG DAILY
  3. METOPROLOL [Concomitant]
     Dosage: 25 MG, BID
  4. LISINOPRIL [Concomitant]
     Dosage: 10 MG DAILY
  5. SIMVASTATIN [Concomitant]
     Dosage: 40 MG DAILY

REACTIONS (5)
  - Thrombosis in device [None]
  - Cardiogenic shock [None]
  - Acute myocardial infarction [None]
  - Ventricular fibrillation [None]
  - Drug ineffective [None]
